FAERS Safety Report 7377760-3 (Version None)
Quarter: 2011Q1

REPORT INFORMATION
  Report Type: 
  Country: None (occurrence: None)
  Receive Date: 20110328
  Receipt Date: 20110321
  Transmission Date: 20110831
  Serious: Yes (Hospitalization)
  Sender: FDA-Public Use
  Company Number: FR-PFIZER INC-2011060997

PATIENT
  Age: 16 Year
  Sex: Male

DRUGS (2)
  1. PARACETAMOL [Concomitant]
     Indication: INFLUENZA LIKE ILLNESS
  2. ADVIL LIQUI-GELS [Suspect]
     Indication: INFLUENZA LIKE ILLNESS
     Dosage: 2 DF, 4X/DAY
     Route: 048
     Dates: start: 20110126, end: 20110129

REACTIONS (3)
  - NEUTROPENIA [None]
  - LEUKOPENIA [None]
  - THROMBOCYTOPENIA [None]
